FAERS Safety Report 5066149-8 (Version None)
Quarter: 2006Q3

REPORT INFORMATION
  Report Type: 
  Country: None (occurrence: None)
  Receive Date: 20060725
  Receipt Date: 20060629
  Transmission Date: 20061208
  Serious: Yes (Death)
  Sender: FDA-Public Use
  Company Number: 14428

PATIENT
  Age: 3 Year
  Sex: Female
  Weight: 14 kg

DRUGS (3)
  1. CARBOPLATIN [Suspect]
     Indication: BONE MARROW TRANSPLANT
     Dates: start: 20060401
  2. ETOPOSIDE [Suspect]
     Indication: BONE MARROW TRANSPLANT
     Dates: start: 20060401
  3. THIOTEPA [Suspect]
     Indication: BONE MARROW TRANSPLANT
     Dates: start: 20060401

REACTIONS (6)
  - BRAIN OEDEMA [None]
  - CARDIO-RESPIRATORY ARREST [None]
  - CEREBRAL ISCHAEMIA [None]
  - CONVULSION [None]
  - DECEREBRATION [None]
  - MIOSIS [None]
